FAERS Safety Report 12676077 (Version 3)
Quarter: 2016Q3

REPORT INFORMATION
  Report Type: Report from Study
  Country: AU (occurrence: AU)
  Receive Date: 20160823
  Receipt Date: 20160912
  Transmission Date: 20161109
  Serious: Yes (Disabling, Other)
  Sender: FDA-Public Use
  Company Number: PHHO2016AU012234

PATIENT
  Age: 75 Year
  Sex: Male
  Weight: 74.5 kg

DRUGS (3)
  1. LUCRIN [Concomitant]
     Active Substance: LEUPROLIDE ACETATE
     Indication: PRODUCT USED FOR UNKNOWN INDICATION
     Dosage: 22.5 MG, 3 MONTHLY
     Route: 065
     Dates: start: 20051212, end: 20070314
  2. LUCRIN [Concomitant]
     Active Substance: LEUPROLIDE ACETATE
     Dosage: 22.5 MG, 3 MONTHLY
     Route: 065
     Dates: start: 20160212, end: 20160512
  3. ZOLEDRONATE [Suspect]
     Active Substance: ZOLEDRONIC ACID
     Indication: METASTASES TO BONE
     Dosage: 4 MG, IN 100 ML NORMAL SALINE 3 MONTHLY
     Route: 042
     Dates: start: 20051212

REACTIONS (1)
  - Osteonecrosis of jaw [Recovering/Resolving]

NARRATIVE: CASE EVENT DATE: 20160315
